FAERS Safety Report 6720618-0 (Version None)
Quarter: 2010Q2

REPORT INFORMATION
  Report Type: 
  Country: None (occurrence: None)
  Receive Date: 20100510
  Receipt Date: 20100427
  Transmission Date: 20101027
  Serious: No
  Sender: FDA-Public Use
  Company Number: B0651465A

PATIENT
  Age: 31 Year
  Sex: Female
  Weight: 111.1766 kg

DRUGS (9)
  1. WELLBUTRIN [Suspect]
  2. LABETALOL HCL [Suspect]
  3. DIGOXIN [Suspect]
     Dosage: INTRAVENOUS
     Route: 042
  4. SUCCINYLCHOLINE CHLORIDE [Suspect]
     Indication: ANAESTHESIA
     Dosage: 180 MG
  5. METHYLDOPA [Suspect]
  6. MIDAZOLAM (MIDAZOLAM) (FORMULATION UNKNOWN) [Suspect]
     Dosage: 2 MG
  7. FENTANYL [Suspect]
     Dosage: 100 MCG
  8. ETOMIDATE [Suspect]
     Indication: ANAESTHESIA
     Dosage: 30 MG
  9. DESFLURANE [Suspect]
     Indication: ANAESTHESIA

REACTIONS (13)
  - ABDOMINAL PAIN [None]
  - ATRIAL FLUTTER [None]
  - BLOOD PRESSURE DECREASED [None]
  - CARDIOMEGALY [None]
  - DRUG EXPOSURE DURING PREGNANCY [None]
  - DYSPNOEA [None]
  - EJECTION FRACTION DECREASED [None]
  - FOETAL HEART RATE DECELERATION [None]
  - HEART RATE INCREASED [None]
  - MATERNAL DRUGS AFFECTING FOETUS [None]
  - PALPITATIONS [None]
  - PRE-ECLAMPSIA [None]
  - PULMONARY CONGESTION [None]
